FAERS Safety Report 15774089 (Version 2)
Quarter: 2019Q1

REPORT INFORMATION
  Report Type: Spontaneous
  Country: FR (occurrence: FR)
  Receive Date: 20181229
  Receipt Date: 20190118
  Transmission Date: 20190417
  Serious: Yes (Other)
  Sender: FDA-Public Use
  Company Number: FR-AUROBINDO-AUR-APL-2018-063387

PATIENT
  Age: 58 Year
  Sex: Male

DRUGS (8)
  1. BISOCE [Suspect]
     Active Substance: BISOPROLOL
     Indication: MYOCARDIAL INFARCTION
     Dosage: 2 DOSAGE FORM, ONCE A DAY
     Route: 048
     Dates: start: 201804
  2. PANTOPRAZOLE [Suspect]
     Active Substance: PANTOPRAZOLE
     Indication: PRODUCT USED FOR UNKNOWN INDICATION
     Dosage: 40 MILLIGRAM, ONCE A DAY
     Route: 048
     Dates: start: 201804, end: 20180601
  3. AMLODIPINE [Suspect]
     Active Substance: AMLODIPINE BESYLATE
     Indication: HYPERTENSION
     Dosage: 5 MILLIGRAM, ONCE A DAY (QD)
     Route: 048
     Dates: start: 201804
  4. RAMIPRIL. [Suspect]
     Active Substance: RAMIPRIL
     Indication: PROPHYLAXIS
     Dosage: 2.5 MILLIGRAM, ONCE A DAY (QD)
     Route: 048
     Dates: start: 201804
  5. ATORVASTATIN [Suspect]
     Active Substance: ATORVASTATIN
     Indication: PROPHYLAXIS
     Dosage: 80 MILLIGRAM, ONCE A DAY
     Route: 048
     Dates: start: 201804, end: 20180601
  6. KARDEGIC [Suspect]
     Active Substance: ASPIRIN DL-LYSINE
     Indication: PROPHYLAXIS
     Dosage: 1 DOSAGE FORM, ONCE A DAY
     Route: 048
     Dates: start: 201804
  7. CLOPIDOGREL [Suspect]
     Active Substance: CLOPIDOGREL BISULFATE
     Indication: PROPHYLAXIS
     Dosage: 75 MILLIGRAM, ONCE A DAY (QD)
     Route: 048
     Dates: start: 201804
  8. METFORMINE                         /00082701/ [Concomitant]
     Active Substance: METFORMIN HYDROCHLORIDE
     Indication: PRODUCT USED FOR UNKNOWN INDICATION
     Dosage: UNK
     Route: 065

REACTIONS (2)
  - Pruritus [Recovering/Resolving]
  - Cholestasis [Recovered/Resolved]

NARRATIVE: CASE EVENT DATE: 20180426
